FAERS Safety Report 6821137-3 (Version None)
Quarter: 2010Q3

REPORT INFORMATION
  Report Type: 
  Country: None (occurrence: None)
  Receive Date: 20100707
  Receipt Date: 20080318
  Transmission Date: 20110219
  Serious: No
  Sender: FDA-Public Use
  Company Number: US-PFIZER INC-2008024805

PATIENT
  Sex: Female
  Weight: 50 kg

DRUGS (2)
  1. ZOLOFT [Suspect]
     Indication: DEPRESSION
     Dates: start: 20071201
  2. OVCON-35 [Concomitant]
     Indication: CONTRACEPTION
     Dates: start: 20060101

REACTIONS (3)
  - NAIL DISORDER [None]
  - ONYCHOMADESIS [None]
  - RASH [None]
